FAERS Safety Report 6930675-4 (Version None)
Quarter: 2010Q3

REPORT INFORMATION
  Report Type: 
  Country: None (occurrence: None)
  Receive Date: 20100809
  Receipt Date: 20091207
  Transmission Date: 20110219
  Serious: No
  Sender: FDA-Public Use
  Company Number: US-001239

PATIENT
  Sex: Male

DRUGS (10)
  1. DEGARELIX 80 MG [Suspect]
     Indication: PROSTATE CANCER
     Dosage: (80 MG 1X/MONTH SUBCUTANEOUS)
     Route: 058
     Dates: start: 20090819
  2. NAMENDA [Concomitant]
  3. ASCORBIC ACID [Concomitant]
  4. FISH OIL [Concomitant]
  5. COUMADIN [Concomitant]
  6. CYANOCOBALAMIN [Concomitant]
  7. DAILY MULTIVITAMIN [Concomitant]
  8. CHONDROITIN W/GLUCOSAMINE [Concomitant]
  9. GALANTAMINE [Concomitant]
  10. PREDISONE [Concomitant]

REACTIONS (2)
  - INJECTION SITE INFLAMMATION [None]
  - INJECTION SITE RASH [None]
